FAERS Safety Report 8552278-0 (Version None)
Quarter: 2012Q3

REPORT INFORMATION
  Report Type: 
  Country: None (occurrence: None)
  Receive Date: 20120723
  Receipt Date: 20120723
  Transmission Date: 20120928
  Serious: Yes (Hospitalization)
  Sender: FDA-Public Use
  Company Number: None

PATIENT
  Sex: Female
  Weight: 61.2356 kg

DRUGS (1)
  1. MIRENA [Suspect]

REACTIONS (4)
  - DEVICE MALFUNCTION [None]
  - PELVIC PAIN [None]
  - DEVICE DIFFICULT TO USE [None]
  - DEVICE BREAKAGE [None]
